FAERS Safety Report 7039195-2 (Version None)
Quarter: 2010Q4

REPORT INFORMATION
  Report Type: 
  Country: None (occurrence: None)
  Receive Date: 20101012
  Receipt Date: 20101008
  Transmission Date: 20110411
  Serious: Yes (Other)
  Sender: FDA-Public Use
  Company Number: US-TYCO HEALTHCARE/MALLINCKRODT-T201002063

PATIENT
  Sex: Male

DRUGS (1)
  1. OPTIMARK [Suspect]
     Indication: NUCLEAR MAGNETIC RESONANCE IMAGING BRAIN
     Dosage: 18 ML, SINGLE
     Route: 042
     Dates: start: 20100929, end: 20100929

REACTIONS (5)
  - DYSPHONIA [None]
  - ERYTHEMA [None]
  - LACRIMATION INCREASED [None]
  - RHINORRHOEA [None]
  - THROAT TIGHTNESS [None]
